FAERS Safety Report 18388491 (Version 1)
Quarter: 2020Q4

REPORT INFORMATION
  Report Type: Spontaneous
  Country: GB (occurrence: GB)
  Receive Date: 20201015
  Receipt Date: 20201015
  Transmission Date: 20210114
  Serious: Yes (Death, Other)
  Sender: FDA-Public Use
  Company Number: GB-DENTSPLY-2020SCDP000334

PATIENT

DRUGS (4)
  1. LIDOCAINE HCL [Suspect]
     Active Substance: LIDOCAINE HYDROCHLORIDE
     Indication: OSTEOARTHRITIS
  2. TRIAMCINOLONE [Suspect]
     Active Substance: TRIAMCINOLONE
     Indication: ARTHRALGIA
     Dosage: ULTRASOUND-GUIDED INTRA-ARTICULAR HIP INJECTION USGI TRIAMCINOLONE/LIDOCAINE, BCT PLUS ULTRASOUND-GU
     Route: 014
  3. TRIAMCINOLONE [Suspect]
     Active Substance: TRIAMCINOLONE
     Indication: OSTEOARTHRITIS
  4. LIDOCAINE HCL [Suspect]
     Active Substance: LIDOCAINE HYDROCHLORIDE
     Indication: ARTHRALGIA
     Dosage: ULTRASOUND-GUIDED INTRA-ARTICULAR HIP INJECTION USGI TRIAMCINOLONE/LIDOCAINE, BCT PLUS ULTRASOUND-GU
     Route: 014

REACTIONS (1)
  - Endocarditis [Fatal]
